FAERS Safety Report 23217170 (Version 3)
Quarter: 2024Q1

REPORT INFORMATION
  Report Type: Spontaneous
  Country: US (occurrence: US)
  Receive Date: 20231122
  Receipt Date: 20240116
  Transmission Date: 20240409
  Serious: No
  Sender: FDA-Public Use
  Company Number: US-PFIZER INC-202300369336

PATIENT
  Age: 14 Year
  Sex: Male
  Weight: 45.81 kg

DRUGS (2)
  1. GENOTROPIN [Suspect]
     Active Substance: SOMATROPIN
     Indication: Short stature
     Dosage: 2 MG, DAILY (EVERY NIGHT)
     Route: 058
     Dates: start: 202303
  2. GENOTROPIN [Suspect]
     Active Substance: SOMATROPIN
     Dosage: UNK
     Dates: start: 202310

REACTIONS (3)
  - Device difficult to use [Unknown]
  - Device issue [Unknown]
  - Drug dose omission by device [Unknown]
